FAERS Safety Report 7902087-8 (Version None)
Quarter: 2011Q4

REPORT INFORMATION
  Report Type: 
  Country: None (occurrence: None)
  Receive Date: 20111108
  Receipt Date: 20111026
  Transmission Date: 20120403
  Serious: Yes (Hospitalization)
  Sender: FDA-Public Use
  Company Number: US-BAYER-2011-011235

PATIENT
  Age: 25 Year
  Sex: Female
  Weight: 62.132 kg

DRUGS (3)
  1. YAZ [Suspect]
     Indication: CONTRACEPTION
     Dosage: UNK
     Dates: start: 20080915, end: 20090112
  2. YAZ [Suspect]
     Indication: PREMENSTRUAL SYNDROME
  3. VENTOLIN [Concomitant]
     Indication: ASTHMA
     Dosage: UNK UNK, PRN
     Dates: start: 20080101

REACTIONS (12)
  - VIITH NERVE PARALYSIS [None]
  - ANXIETY [None]
  - EMOTIONAL DISTRESS [None]
  - DIZZINESS [None]
  - CEREBRAL INFARCTION [None]
  - INJURY [None]
  - MIGRAINE [None]
  - PAIN [None]
  - DYSARTHRIA [None]
  - CEREBROVASCULAR ACCIDENT [None]
  - DEPRESSION [None]
  - HEADACHE [None]
